FAERS Safety Report 7907598-7 (Version None)
Quarter: 2011Q4

REPORT INFORMATION
  Report Type: 
  Country: None (occurrence: None)
  Receive Date: 20111110
  Receipt Date: 20111106
  Transmission Date: 20120403
  Serious: Yes (Death)
  Sender: FDA-Public Use
  Company Number: PHHY2011MX097999

PATIENT
  Sex: Male

DRUGS (1)
  1. DIOVAN HCT [Suspect]
     Indication: HYPERTENSION
     Dosage: 1 DF, (160/12.5MG) DAILY
     Dates: start: 20091010

REACTIONS (3)
  - ELECTROLYTE IMBALANCE [None]
  - DIABETIC COMPLICATION [None]
  - HYPERTENSION [None]
